FAERS Safety Report 4672944-7 (Version None)
Quarter: 2005Q2

REPORT INFORMATION
  Report Type: 
  Country: None (occurrence: None)
  Receive Date: 20050524
  Receipt Date: 20050207
  Transmission Date: 20051028
  Serious: Yes (Life-Threatening, Hospitalization, Disabling)
  Sender: FDA-Public Use
  Company Number: DE-MERCK-0502DEU00061

PATIENT
  Age: 49 Year
  Sex: Male

DRUGS (4)
  1. VIOXX [Suspect]
     Indication: BONE PAIN
     Route: 048
     Dates: start: 20010419, end: 20040929
  2. OXYBUTYNIN [Concomitant]
     Indication: MICTURITION DISORDER
     Route: 048
     Dates: start: 20010101
  3. SODIUM BICARBONATE [Concomitant]
     Route: 054
     Dates: start: 20010101
  4. [THERAPY UNSPECIFIED] [Concomitant]
     Route: 054
     Dates: start: 20010101

REACTIONS (4)
  - ACUTE MYOCARDIAL INFARCTION [None]
  - CORONARY ARTERY DISEASE [None]
  - MYOCARDIAL INFARCTION [None]
  - REMOVAL OF INTERNAL FIXATION [None]
